FAERS Safety Report 22174331 (Version 1)
Quarter: 2023Q2

REPORT INFORMATION
  Report Type: Other
  Country: US (occurrence: None)
  Receive Date: 20230405
  Receipt Date: 20230405
  Transmission Date: 20230721
  Serious: Yes (Hospitalization)
  Sender: FDA-Public Use
  Company Number: US-ROCHE-3320215

PATIENT
  Age: 64 Year
  Sex: Female

DRUGS (1)
  1. OCREVUS [Suspect]
     Active Substance: OCRELIZUMAB
     Indication: Multiple sclerosis
     Dosage: VIAL, SUBSEQUENT DOSE: 600 MG EVERY 6 MONTHS DATE OF TREATMENT: 08/SEP/2022, 10/MAR/2022, 09/SEP/202
     Route: 042
     Dates: end: 20220908

REACTIONS (4)
  - Pneumonia [Unknown]
  - COVID-19 [Unknown]
  - Fall [Unknown]
  - Head injury [Unknown]

NARRATIVE: CASE EVENT DATE: 20220901
